FAERS Safety Report 17650685 (Version 1)
Quarter: 2020Q2

REPORT INFORMATION
  Report Type: Report from Study
  Country: CA (occurrence: CA)
  Receive Date: 20200408
  Receipt Date: 20200408
  Transmission Date: 20200713
  Serious: Yes (Hospitalization)
  Sender: FDA-Public Use
  Company Number: CA-TOLMAR, INC.-19CA000966

PATIENT
  Age: 55 Year
  Sex: Male

DRUGS (1)
  1. ELIGARD [Suspect]
     Active Substance: LEUPROLIDE ACETATE
     Indication: PROSTATE CANCER
     Dosage: 30 MG, Q4MONTHS
     Route: 058
     Dates: start: 20170203

REACTIONS (1)
  - Arthritis infective [Recovering/Resolving]

NARRATIVE: CASE EVENT DATE: 201909
